FAERS Safety Report 6575667-2 (Version None)
Quarter: 2010Q1

REPORT INFORMATION
  Report Type: 
  Country: None (occurrence: None)
  Receive Date: 20100209
  Receipt Date: 20090727
  Transmission Date: 20100710
  Serious: Yes (Hospitalization)
  Sender: FDA-Public Use
  Company Number: TR-MERCK-0907TUR00006

PATIENT
  Age: 71 Year
  Sex: Male

DRUGS (4)
  1. ZOCOR [Suspect]
     Indication: HYPERLIPIDAEMIA
     Route: 048
     Dates: start: 20010901, end: 20011001
  2. ZOCOR [Suspect]
     Route: 048
     Dates: start: 20000101, end: 20010901
  3. ITRACONAZOLE [Suspect]
     Indication: TINEA PEDIS
     Route: 048
     Dates: start: 20010901, end: 20011001
  4. LOVASTATIN [Concomitant]
     Indication: CARDIOVASCULAR EVENT PROPHYLAXIS
     Route: 048
     Dates: start: 19990101

REACTIONS (3)
  - DRUG INTERACTION [None]
  - LIVER FUNCTION TEST ABNORMAL [None]
  - RHABDOMYOLYSIS [None]
